FAERS Safety Report 21258168 (Version 3)
Quarter: 2022Q4

REPORT INFORMATION
  Report Type: Spontaneous
  Country: JP (occurrence: JP)
  Receive Date: 20220826
  Receipt Date: 20221017
  Transmission Date: 20230113
  Serious: Yes (Hospitalization)
  Sender: FDA-Public Use
  Company Number: JP-KISSEI-PT20220404_P_1

PATIENT
  Age: 74 Year
  Sex: Male

DRUGS (9)
  1. VELPHORO [Suspect]
     Active Substance: SUCROFERRIC OXYHYDROXIDE
     Indication: Hyperphosphataemia
     Dosage: 750 MG/DAY
     Route: 048
     Dates: end: 20220816
  2. NIFEDIPINE [Concomitant]
     Active Substance: NIFEDIPINE
  3. AMLODIPINE BESYLATE [Concomitant]
     Active Substance: AMLODIPINE BESYLATE
  4. ROSUVASTATIN CALCIUM [Concomitant]
     Active Substance: ROSUVASTATIN CALCIUM
  5. LANSOPRAZOLE [Concomitant]
     Active Substance: LANSOPRAZOLE
  6. LINAGLIPTIN [Concomitant]
     Active Substance: LINAGLIPTIN
  7. VOGLIBOSE [Concomitant]
     Active Substance: VOGLIBOSE
     Route: 048
  8. LANTHANUM CARBONATE [Concomitant]
     Active Substance: LANTHANUM CARBONATE
  9. EVOCALCET [Concomitant]
     Active Substance: EVOCALCET
     Route: 048

REACTIONS (3)
  - Hypermagnesaemia [Recovering/Resolving]
  - Altered state of consciousness [Recovered/Resolved]
  - COVID-19 [Unknown]

NARRATIVE: CASE EVENT DATE: 20220806
